FAERS Safety Report 5899012-0 (Version None)
Quarter: 2008Q3

REPORT INFORMATION
  Report Type: 
  Country: None (occurrence: None)
  Receive Date: 20080925
  Receipt Date: 20080913
  Transmission Date: 20090109
  Serious: Yes (Other)
  Sender: FDA-Public Use
  Company Number: US-PFIZER INC-2008077703

PATIENT
  Sex: Female
  Weight: 82.6 kg

DRUGS (1)
  1. NEURONTIN [Suspect]
     Indication: NEUROPATHY PERIPHERAL
     Dates: start: 20080701, end: 20080801

REACTIONS (3)
  - EUSTACHIAN TUBE DYSFUNCTION [None]
  - INNER EAR DISORDER [None]
  - SENSORY DISTURBANCE [None]
